FAERS Safety Report 11982325 (Version 1)
Quarter: 2016Q1

REPORT INFORMATION
  Report Type: Spontaneous
  Country: US (occurrence: None)
  Receive Date: 20160129
  Receipt Date: 20160129
  Transmission Date: 20160526
  Serious: Yes (Other)
  Sender: FDA-Public Use
  Company Number: None

PATIENT
  Age: 64 Year
  Sex: Male
  Weight: 77.11 kg

DRUGS (6)
  1. DIPHENHYDRAMINE. [Concomitant]
     Active Substance: DIPHENHYDRAMINE
  2. IPRATROPIUM 0.6%/ML ROXANE LABS [Suspect]
     Active Substance: IPRATROPIUM
     Indication: SEASONAL ALLERGY
     Dosage: 2 SPRAYS QID, INTRANASAL
     Dates: start: 20140101, end: 20160128
  3. DILTIAZEM [Concomitant]
     Active Substance: DILTIAZEM
  4. MONTELUKAST [Concomitant]
     Active Substance: MONTELUKAST SODIUM
  5. FAMOTIDINE. [Concomitant]
     Active Substance: FAMOTIDINE
  6. LICO3 [Concomitant]

REACTIONS (2)
  - Drug effect decreased [None]
  - Product quality issue [None]
